FAERS Safety Report 12131875 (Version 1)
Quarter: 2016Q1

REPORT INFORMATION
  Report Type: Spontaneous
  Country: US (occurrence: None)
  Receive Date: 20160229
  Receipt Date: 20160229
  Transmission Date: 20160526
  Serious: Yes (Disabling, Other)
  Sender: FDA-Public Use
  Company Number: None

PATIENT
  Age: 51 Year
  Sex: Female
  Weight: 51.26 kg

DRUGS (10)
  1. ONE A DAY VITAMINS [Concomitant]
  2. FISH OIL [Concomitant]
     Active Substance: FISH OIL
  3. LEVOFLOXACIN 500MG ZYDUS [Suspect]
     Active Substance: LEVOFLOXACIN
     Indication: SINUS DISORDER
     Dosage: 1 PER DAY, 7 TOTAL ONCE DAILY TAKEN BY MOUTH
     Route: 048
     Dates: start: 20150502, end: 20150508
  4. VALACYCLOVIR [Concomitant]
     Active Substance: VALACYCLOVIR HYDROCHLORIDE
  5. CALCIUM [Concomitant]
     Active Substance: CALCIUM
  6. VITAMIN B COMPLEX [Concomitant]
     Active Substance: CYANOCOBALAMIN\DEXPANTHENOL\NIACINAMIDE\PYRIDOXINE HYDROCHLORIDE\RIBOFLAVIN 5^-PHOSPHATE SODIUM\THIAMINE HYDROCHLORIDE\VITAMIN B COMPLEX
  7. LEVOFLOXACIN 500MG ZYDUS [Suspect]
     Active Substance: LEVOFLOXACIN
     Indication: RESPIRATORY DISORDER
     Dosage: 1 PER DAY, 7 TOTAL ONCE DAILY TAKEN BY MOUTH
     Route: 048
     Dates: start: 20150502, end: 20150508
  8. VITAMIN D [Concomitant]
     Active Substance: CHOLECALCIFEROL
  9. CHELATED MAGNESIUM [Concomitant]
  10. IMIPRAMINE [Concomitant]
     Active Substance: IMIPRAMINE

REACTIONS (11)
  - Chest pain [None]
  - Musculoskeletal pain [None]
  - Rotator cuff syndrome [None]
  - Pain in extremity [None]
  - Dyspnoea [None]
  - Plantar fasciitis [None]
  - Neck pain [None]
  - Tendon pain [None]
  - Epicondylitis [None]
  - Tendonitis [None]
  - Arthralgia [None]

NARRATIVE: CASE EVENT DATE: 20150502
